FAERS Safety Report 11452206 (Version 1)
Quarter: 2015Q3

REPORT INFORMATION
  Report Type: Spontaneous
  Country: US (occurrence: US)
  Receive Date: 20150903
  Receipt Date: 20150903
  Transmission Date: 20151125
  Serious: No
  Sender: FDA-Public Use
  Company Number: US-ROCHE-772181

PATIENT
  Age: 53 Year
  Sex: Male

DRUGS (3)
  1. COPEGUS [Suspect]
     Active Substance: RIBAVIRIN
     Indication: HEPATITIS C
     Dosage: DIVIDED DOSES
     Route: 065
  2. FLUTICASONE [Suspect]
     Active Substance: FLUTICASONE\FLUTICASONE PROPIONATE
     Indication: EAR PAIN
     Route: 065
  3. PEGASYS [Suspect]
     Active Substance: PEGINTERFERON ALFA-2A
     Indication: HEPATITIS C
     Route: 065

REACTIONS (18)
  - Headache [Not Recovered/Not Resolved]
  - Faeces discoloured [Unknown]
  - Nausea [Unknown]
  - Fatigue [Unknown]
  - Suicidal behaviour [Unknown]
  - Influenza like illness [Unknown]
  - Tremor [Unknown]
  - Oropharyngeal pain [Unknown]
  - Abnormal behaviour [Unknown]
  - Injection site rash [Unknown]
  - Injection site bruising [Unknown]
  - Chills [Unknown]
  - Heart rate decreased [Unknown]
  - Emotional distress [Unknown]
  - Hangover [Unknown]
  - Vomiting [Unknown]
  - Dyspnoea [Unknown]
  - Pain [Unknown]

NARRATIVE: CASE EVENT DATE: 20110408
